FAERS Safety Report 9680140 (Version 1)
Quarter: 2013Q4

REPORT INFORMATION
  Report Type: Spontaneous
  Country: US (occurrence: US)
  Receive Date: 20131111
  Receipt Date: 20131111
  Transmission Date: 20140711
  Serious: Yes (Hospitalization)
  Sender: FDA-Public Use
  Company Number: US-BIOGENIDEC-2013BI106449

PATIENT
  Age: 68 Year
  Sex: Male

DRUGS (13)
  1. AVONEX [Suspect]
     Indication: MULTIPLE SCLEROSIS
     Route: 030
     Dates: start: 20130227
  2. ASPIRIN [Concomitant]
  3. B-12 [Concomitant]
  4. CENTRUM SILVER [Concomitant]
  5. CITRICAL CALCIUM + D [Concomitant]
  6. COREG [Concomitant]
  7. FISH OIL [Concomitant]
  8. HYDROCHLOROTHIAZIDE [Concomitant]
  9. LISINOPRIL [Concomitant]
  10. OXYBUTYNIN CHLORIDE ER [Concomitant]
  11. SIMVASTATIN [Concomitant]
  12. TRAMADOL HCL [Concomitant]
  13. TRICOR [Concomitant]

REACTIONS (2)
  - Fractured sacrum [Unknown]
  - Fall [Recovered/Resolved]
